FAERS Safety Report 10026859 (Version 12)
Quarter: 2016Q3

REPORT INFORMATION
  Report Type: Spontaneous
  Country: CA (occurrence: CA)
  Receive Date: 20140321
  Receipt Date: 20160709
  Transmission Date: 20161108
  Serious: Yes (Other)
  Sender: FDA-Public Use
  Company Number: CA-ROCHE-1368922

PATIENT
  Age: 70 Year
  Sex: Male
  Weight: 68 kg

DRUGS (9)
  1. XOLAIR [Suspect]
     Active Substance: OMALIZUMAB
     Route: 058
     Dates: start: 20131021
  2. XOLAIR [Suspect]
     Active Substance: OMALIZUMAB
     Route: 058
     Dates: start: 20160503
  3. XOLAIR [Suspect]
     Active Substance: OMALIZUMAB
     Indication: ASTHMA
     Route: 058
     Dates: start: 20060922
  4. XOLAIR [Suspect]
     Active Substance: OMALIZUMAB
     Route: 058
     Dates: start: 20131119
  5. XOLAIR [Suspect]
     Active Substance: OMALIZUMAB
     Route: 058
     Dates: start: 20131220
  6. XOLAIR [Suspect]
     Active Substance: OMALIZUMAB
     Route: 058
     Dates: start: 20151117
  7. XOLAIR [Suspect]
     Active Substance: OMALIZUMAB
     Route: 058
     Dates: start: 20160405
  8. XOLAIR [Suspect]
     Active Substance: OMALIZUMAB
     Route: 058
     Dates: start: 20160530
  9. XOLAIR [Suspect]
     Active Substance: OMALIZUMAB
     Route: 058
     Dates: start: 20160630

REACTIONS (17)
  - Gait disturbance [Unknown]
  - Respiratory rate increased [Unknown]
  - Tooth disorder [Unknown]
  - Anaemia [Unknown]
  - Weight decreased [Unknown]
  - Malaise [Unknown]
  - Blood pressure systolic increased [Not Recovered/Not Resolved]
  - Nasopharyngitis [Unknown]
  - Respiratory tract congestion [Unknown]
  - Neurogenic shock [Unknown]
  - Productive cough [Unknown]
  - Influenza [Unknown]
  - Dyspnoea [Unknown]
  - Cataract [Unknown]
  - Sputum discoloured [Unknown]
  - Peripheral nerve infection [Unknown]
  - Renal pain [Unknown]

NARRATIVE: CASE EVENT DATE: 20131021
